FAERS Safety Report 10028463 (Version 1)
Quarter: 2014Q1

REPORT INFORMATION
  Report Type: Spontaneous
  Country: GB (occurrence: None)
  Receive Date: 20140319
  Receipt Date: 20140319
  Transmission Date: 20141002
  Serious: Yes (Other)
  Sender: FDA-Public Use
  Company Number: FK201400803

PATIENT
  Sex: 0

DRUGS (2)
  1. MORPHINE [Suspect]
     Indication: FOETAL EXPOSURE DURING PREGNANCY
  2. OXYNORM (OXYCODONE HYDROCHLORIDE) (OXYCODONE HYDROCHLORIDE) [Suspect]
     Indication: FOETAL EXPOSURE DURING PREGNANCY

REACTIONS (6)
  - Drug withdrawal syndrome neonatal [None]
  - Caesarean section [None]
  - Tracheo-oesophageal fistula [None]
  - Maternal drugs affecting foetus [None]
  - Renal cyst [None]
  - Premature baby [None]
